FAERS Safety Report 11456556 (Version 1)
Quarter: 2015Q3

REPORT INFORMATION
  Report Type: Spontaneous
  Country: US (occurrence: US)
  Receive Date: 20150903
  Receipt Date: 20150903
  Transmission Date: 20151125
  Serious: Yes (Other)
  Sender: FDA-Public Use
  Company Number: US-LUNDBECK-DKLU2003526

PATIENT
  Age: 1 Year
  Sex: Male
  Weight: 12 kg

DRUGS (14)
  1. SABRIL [Suspect]
     Active Substance: VIGABATRIN
     Indication: INFANTILE SPASMS
     Route: 065
     Dates: start: 20150616
  2. SABRIL [Suspect]
     Active Substance: VIGABATRIN
     Route: 048
  3. SABRIL [Suspect]
     Active Substance: VIGABATRIN
     Route: 048
  4. MIRALAX [Concomitant]
     Active Substance: POLYETHYLENE GLYCOL 3350
     Indication: PRODUCT USED FOR UNKNOWN INDICATION
     Route: 065
  5. EPIPEN JR [Concomitant]
     Active Substance: EPINEPHRINE
     Indication: FOOD ALLERGY
     Route: 065
  6. SABRIL [Suspect]
     Active Substance: VIGABATRIN
     Route: 048
     Dates: start: 20150617
  7. SABRIL [Suspect]
     Active Substance: VIGABATRIN
     Route: 048
  8. SABRIL [Suspect]
     Active Substance: VIGABATRIN
     Route: 048
     Dates: start: 20150617
  9. SABRIL [Suspect]
     Active Substance: VIGABATRIN
     Route: 048
  10. PREVACID [Concomitant]
     Active Substance: LANSOPRAZOLE
     Indication: GASTROOESOPHAGEAL REFLUX DISEASE
     Route: 065
  11. DIASTAT [Concomitant]
     Active Substance: DIAZEPAM
     Indication: EPILEPSY
     Route: 065
  12. SABRIL [Suspect]
     Active Substance: VIGABATRIN
     Route: 048
  13. TOPAMAX [Concomitant]
     Active Substance: TOPIRAMATE
     Indication: EPILEPSY
     Route: 065
  14. OXCARBAZEPINE. [Concomitant]
     Active Substance: OXCARBAZEPINE
     Indication: EPILEPSY
     Route: 065
     Dates: start: 2015

REACTIONS (4)
  - Pneumonia mycoplasmal [Recovering/Resolving]
  - Pharyngeal oedema [Not Recovered/Not Resolved]
  - Seizure [Recovered/Resolved]
  - Lethargy [Recovered/Resolved]

NARRATIVE: CASE EVENT DATE: 201508
